FAERS Safety Report 9535307 (Version 2)
Quarter: 2013Q3

REPORT INFORMATION
  Report Type: Spontaneous
  Country: US (occurrence: US)
  Receive Date: 20130918
  Receipt Date: 20130918
  Transmission Date: 20140515
  Serious: No
  Sender: FDA-Public Use
  Company Number: US-PURDUE-USA-2012-0089470

PATIENT
  Sex: Female

DRUGS (7)
  1. INTERMEZZO [Suspect]
     Indication: INSOMNIA
     Dosage: 1.75 MG, SINGLE
     Dates: start: 20120514, end: 2012
  2. INTERMEZZO [Suspect]
     Indication: INITIAL INSOMNIA
     Dosage: (2) 1.75 MG TABLETS
     Route: 060
  3. ZYPREXA [Concomitant]
     Indication: BIPOLAR DISORDER
     Dosage: 5 MG, UNK
  4. CYMBALTA [Concomitant]
     Indication: DEPRESSION
     Dosage: 30 MG, UNK
  5. CYMBALTA [Concomitant]
     Indication: PAIN
  6. XANAX [Concomitant]
     Indication: ANXIETY
     Dosage: 1 - 3 MG HS
  7. XANAX [Concomitant]
     Indication: INSOMNIA

REACTIONS (3)
  - Drug ineffective [Unknown]
  - Product taste abnormal [Unknown]
  - Incorrect dose administered [Unknown]
